FAERS Safety Report 4556521-4 (Version None)
Quarter: 2005Q1

REPORT INFORMATION
  Report Type: 
  Country: None (occurrence: None)
  Receive Date: 20050120
  Receipt Date: 20050113
  Transmission Date: 20050727
  Serious: Yes (Death, Hospitalization)
  Sender: FDA-Public Use
  Company Number: PHEH2005US00892

PATIENT
  Sex: Male

DRUGS (2)
  1. ZELNORM [Suspect]
     Dosage: 9 TABLETS
     Route: 048
  2. LOTRONEX [Suspect]

REACTIONS (2)
  - CLOSTRIDIAL INFECTION [None]
  - DIARRHOEA [None]
